FAERS Safety Report 14024864 (Version 1)
Quarter: 2017Q3

REPORT INFORMATION
  Report Type: Spontaneous
  Country: FR (occurrence: FR)
  Receive Date: 20170929
  Receipt Date: 20170929
  Transmission Date: 20171128
  Serious: Yes (Hospitalization)
  Sender: FDA-Public Use
  Company Number: FR-PFIZER INC-2017412057

PATIENT
  Age: 23 Year
  Sex: Female

DRUGS (18)
  1. METHOTREXATE (METHOTREXATE SODIUM) [Suspect]
     Active Substance: METHOTREXATE SODIUM
     Indication: ACUTE LEUKAEMIA
     Dosage: 15 MG, CYCLIC
     Route: 037
     Dates: start: 20170810, end: 20170810
  2. LUTERAN [Concomitant]
     Active Substance: CHLORMADINONE ACETATE
     Dosage: 1 DF, 1X/DAY
  3. DEPO-MEDROL [Suspect]
     Active Substance: METHYLPREDNISOLONE ACETATE
     Indication: ACUTE LEUKAEMIA
     Dosage: 40 MG, CYCLIC
     Route: 037
     Dates: start: 20170810, end: 20170810
  4. DEPO-MEDROL [Suspect]
     Active Substance: METHYLPREDNISOLONE ACETATE
     Dosage: 40 MG, CYCLIC
     Route: 037
     Dates: start: 20170817, end: 20170817
  5. ARACYTINE [Suspect]
     Active Substance: CYTARABINE
     Dosage: 40 MG, CYCLIC
     Route: 037
     Dates: start: 20170814, end: 20170814
  6. VANCOMYCINE SANDOZ [Suspect]
     Active Substance: VANCOMYCIN
     Indication: SEPTIC SHOCK
     Dosage: 2500 MG, 1X/DAY
     Route: 042
     Dates: start: 20170825
  7. DEPO-MEDROL [Suspect]
     Active Substance: METHYLPREDNISOLONE ACETATE
     Dosage: 40 MG, CYCLIC
     Route: 037
     Dates: start: 20170814, end: 20170814
  8. ARACYTINE [Suspect]
     Active Substance: CYTARABINE
     Indication: ACUTE LEUKAEMIA
     Dosage: 40 MG, CYCLIC
     Route: 037
     Dates: start: 20170810, end: 20170810
  9. TRIFLUCAN [Suspect]
     Active Substance: FLUCONAZOLE
     Indication: FUNGAL INFECTION
     Dosage: 400 MG, 1X/DAY
     Route: 042
     Dates: start: 20170825, end: 20170826
  10. METRONIDAZOLE B BRAUN [Suspect]
     Active Substance: METRONIDAZOLE
     Indication: COLITIS
     Dosage: 500 MG, 3X/DAY
     Route: 042
     Dates: start: 20170829
  11. ARACYTINE [Suspect]
     Active Substance: CYTARABINE
     Dosage: 40 MG, CYCLIC
     Route: 037
     Dates: start: 20170817, end: 20170817
  12. METHOTREXATE (METHOTREXATE SODIUM) [Suspect]
     Active Substance: METHOTREXATE SODIUM
     Dosage: 15 MG, CYCLIC
     Route: 037
     Dates: start: 20170814, end: 20170814
  13. ACICLOVIR MYLAN /00587301/ [Suspect]
     Active Substance: ACYCLOVIR
     Indication: HERPES SIMPLEX
     Dosage: 700 MG, 3X/DAY
     Route: 042
     Dates: start: 20170824
  14. TIENAM [Suspect]
     Active Substance: CILASTATIN SODIUM\IMIPENEM
     Indication: SEPTIC SHOCK
     Dosage: 3 DF, 1X/DAY
     Route: 042
     Dates: start: 20170823
  15. AMBISOME [Suspect]
     Active Substance: AMPHOTERICIN B
     Indication: FUNGAL INFECTION
     Dosage: 210 MG, 1X/DAY
     Route: 042
     Dates: start: 20170828, end: 20170830
  16. ORACILLINE /00001805/ [Concomitant]
     Active Substance: PENICILLIN V BENZATHINE
     Dosage: 1 MILLION IU, 2X/DAY
  17. TRIFLUCAN [Suspect]
     Active Substance: FLUCONAZOLE
     Dosage: 400 MG, 1X/DAY
     Route: 042
     Dates: start: 20170828
  18. METHOTREXATE (METHOTREXATE SODIUM) [Suspect]
     Active Substance: METHOTREXATE SODIUM
     Dosage: 15 MG, CYCLIC
     Route: 037
     Dates: start: 20170817, end: 20170817

REACTIONS (4)
  - Palmar-plantar erythrodysaesthesia syndrome [Recovering/Resolving]
  - Escherichia sepsis [Unknown]
  - Septic shock [Unknown]
  - Colitis [Unknown]

NARRATIVE: CASE EVENT DATE: 20170820
